FAERS Safety Report 6922734-7 (Version None)
Quarter: 2010Q3

REPORT INFORMATION
  Report Type: 
  Country: None (occurrence: None)
  Receive Date: 20100813
  Receipt Date: 20100806
  Transmission Date: 20110219
  Serious: Yes (Other)
  Sender: FDA-Public Use
  Company Number: US-BAYER-201018859BCC

PATIENT
  Sex: Female

DRUGS (1)
  1. MIDOL COMPLETE CAPLETS [Suspect]
     Indication: PRODUCT USED FOR UNKNOWN INDICATION
     Route: 048

REACTIONS (4)
  - ANXIETY [None]
  - DEPRESSION [None]
  - DEPRESSION SUICIDAL [None]
  - NAUSEA [None]
